FAERS Safety Report 21723573 (Version 1)
Quarter: 2022Q4

REPORT INFORMATION
  Report Type: Spontaneous
  Country: US (occurrence: US)
  Receive Date: 20221213
  Receipt Date: 20221213
  Transmission Date: 20230113
  Serious: Yes (Other)
  Sender: FDA-Public Use
  Company Number: US-MYLANLABS-2022M1137888

PATIENT
  Sex: Female

DRUGS (10)
  1. CLOBAZAM [Suspect]
     Active Substance: CLOBAZAM
     Indication: Product used for unknown indication
     Dosage: 20 MILLIGRAM, QD
     Route: 065
     Dates: start: 20201112
  2. TOPIRAMATE [Concomitant]
     Active Substance: TOPIRAMATE
     Dosage: 100 MILLIGRAM, BID
     Route: 065
     Dates: start: 200012
  3. CLONAZEPAM [Concomitant]
     Active Substance: CLONAZEPAM
     Dosage: UNK, Q8H BREAKTHROUGH
     Route: 065
  4. DIASTAT [Concomitant]
     Active Substance: DIAZEPAM
     Dosage: 12.5 MILLIGRAM
     Route: 065
  5. KEPPRA [Concomitant]
     Active Substance: LEVETIRACETAM
     Indication: Psychiatric symptom
     Dosage: 500 MILLIGRAM, BID
     Route: 065
  6. ZONEGRAN [Concomitant]
     Active Substance: ZONISAMIDE
     Dosage: 100 MILLIGRAM, QH
     Route: 065
  7. PROZAC [Concomitant]
     Active Substance: FLUOXETINE HYDROCHLORIDE
     Dosage: 10 MILLIGRAM, AM (DOWN FROM 20MG ?WHEN, SELF-D/C^D EARLY 2020)
     Route: 065
  8. TRILEPTAL [Concomitant]
     Active Substance: OXCARBAZEPINE
     Dosage: 3 DOSAGE FORM, AM
     Route: 065
  9. TRILEPTAL [Concomitant]
     Active Substance: OXCARBAZEPINE
     Dosage: 4 DOSAGE FORM, HS (TRANSITIONED 8/20 TO APTIOM AFTER BREAKTHROUGH SEIZURE)
     Route: 065
  10. APTIOM [Concomitant]
     Active Substance: ESLICARBAZEPINE ACETATE
     Dosage: 800 MILLIGRAM, QH
     Route: 065
     Dates: start: 202008

REACTIONS (2)
  - Stevens-Johnson syndrome [Unknown]
  - Drug hypersensitivity [Unknown]
